FAERS Safety Report 12100852 (Version 4)
Quarter: 2017Q3

REPORT INFORMATION
  Report Type: Spontaneous
  Country: ES (occurrence: ES)
  Receive Date: 20160222
  Receipt Date: 20170810
  Transmission Date: 20171127
  Serious: Yes (Other)
  Sender: FDA-Public Use
  Company Number: ES-SA-2016SA033154

PATIENT
  Age: 39 Year
  Sex: Female
  Weight: 65 kg

DRUGS (1)
  1. AUBAGIO [Suspect]
     Active Substance: TERIFLUNOMIDE
     Indication: MULTIPLE SCLEROSIS
     Route: 048
     Dates: start: 20150421

REACTIONS (7)
  - Basedow^s disease [Recovered/Resolved with Sequelae]
  - Weight decreased [Recovered/Resolved with Sequelae]
  - Hypothyroidism [Recovering/Resolving]
  - Tachycardia [Recovered/Resolved with Sequelae]
  - Tremor [Recovered/Resolved with Sequelae]
  - Hyperthyroidism [Recovered/Resolved with Sequelae]
  - Asthenia [Recovered/Resolved with Sequelae]

NARRATIVE: CASE EVENT DATE: 20150521
